FAERS Safety Report 5966011-X (Version None)
Quarter: 2008Q4

REPORT INFORMATION
  Report Type: 
  Country: None (occurrence: None)
  Receive Date: 20081125
  Receipt Date: 20081117
  Transmission Date: 20090506
  Serious: Yes (Other)
  Sender: FDA-Public Use
  Company Number: JP-JNJFOC-20081103642

PATIENT
  Sex: Male
  Weight: 52 kg

DRUGS (8)
  1. REMICADE [Suspect]
     Route: 042
  2. REMICADE [Suspect]
     Dosage: 12 INFUSIONS ON UNKNOWN DATES
     Route: 042
  3. REMICADE [Suspect]
     Indication: RHEUMATOID ARTHRITIS
     Route: 042
  4. PREDNISOLONE [Suspect]
  5. PREDNISOLONE [Suspect]
     Indication: DRUG USE FOR UNKNOWN INDICATION
  6. METHOTREXATE [Suspect]
  7. METHOTREXATE [Suspect]
  8. METHOTREXATE [Suspect]
     Indication: RHEUMATOID ARTHRITIS

REACTIONS (4)
  - HIP ARTHROPLASTY [None]
  - KNEE ARTHROPLASTY [None]
  - OSTEOMYELITIS [None]
  - TOOTH INFECTION [None]
